FAERS Safety Report 14920838 (Version 2)
Quarter: 2021Q4

REPORT INFORMATION
  Report Type: Report from Study
  Country: FR (occurrence: FR)
  Receive Date: 20180521
  Receipt Date: 20211021
  Transmission Date: 20220303
  Serious: Yes (Other)
  Sender: FDA-Public Use
  Company Number: FR-SHIRE-FR201807496

PATIENT
  Sex: Male

DRUGS (19)
  1. METHOTREXATE [Suspect]
     Active Substance: METHOTREXATE
     Indication: Acute lymphocytic leukaemia
     Dosage: 10 MG, UNK
     Route: 037
     Dates: start: 20180117
  2. HYDROCORTISONE [Suspect]
     Active Substance: HYDROCORTISONE
     Indication: Acute lymphocytic leukaemia
     Dosage: 12.5 MG, UNK
     Route: 037
     Dates: start: 20180117
  3. CYTARABINE [Suspect]
     Active Substance: CYTARABINE
     Indication: Acute lymphocytic leukaemia
     Dosage: 25 MG, UNK
     Route: 037
     Dates: start: 20180117
  4. CYTARABINE [Suspect]
     Active Substance: CYTARABINE
     Dosage: 39 MG, UNK
     Route: 042
     Dates: start: 20180117
  5. MERCAPTOPURINE [Suspect]
     Active Substance: MERCAPTOPURINE
     Indication: Acute lymphocytic leukaemia
     Dosage: 32 MG, UNK
     Route: 048
     Dates: start: 20180115
  6. CYCLOPHOSPHAMIDE [Suspect]
     Active Substance: CYCLOPHOSPHAMIDE
     Indication: Acute lymphocytic leukaemia
     Dosage: 520 MG, UNK
     Route: 042
     Dates: start: 20180115
  7. PEGASPARGASE [Suspect]
     Active Substance: PEGASPARGASE
     Indication: Acute lymphocytic leukaemia
     Dosage: UNK
     Route: 065
  8. BACTRIM [Concomitant]
     Active Substance: SULFAMETHOXAZOLE\TRIMETHOPRIM
     Indication: Infection prophylaxis
     Dosage: UNK
  9. TAZOBACTAM [Concomitant]
     Active Substance: TAZOBACTAM
     Indication: Pyrexia
     Dosage: UNK
  10. TAMIFLU [Concomitant]
     Active Substance: OSELTAMIVIR PHOSPHATE
     Indication: Influenza
     Dosage: UNK
  11. TAMIFLU [Concomitant]
     Active Substance: OSELTAMIVIR PHOSPHATE
     Indication: Influenza
     Dosage: UNK
  12. DEXAMETHASONE [Concomitant]
     Active Substance: DEXAMETHASONE
     Indication: Hypersensitivity
     Dosage: UNK
  13. POLARAMINE [Concomitant]
     Active Substance: DEXCHLORPHENIRAMINE MALEATE
     Indication: Hypersensitivity
     Dosage: UNK
  14. ACETAMINOPHEN [Concomitant]
     Active Substance: ACETAMINOPHEN
     Indication: Pyrexia
     Dosage: UNK
  15. PIPERACILLIN. [Concomitant]
     Active Substance: PIPERACILLIN SODIUM
     Indication: Pyrexia
     Dosage: UNK
  16. RACECADOTRIL [Concomitant]
     Active Substance: RACECADOTRIL
     Indication: Diarrhoea
     Dosage: UNK
  17. VANCOMYCIN [Concomitant]
     Active Substance: VANCOMYCIN
     Indication: Pyrexia
     Dosage: UNK
  18. CEFTAZIDIME [Concomitant]
     Active Substance: CEFTAZIDIME
     Indication: Pyrexia
     Dosage: UNK
  19. AMIKACIN [Concomitant]
     Active Substance: AMIKACIN
     Indication: Pyrexia
     Dosage: UNK

REACTIONS (1)
  - Alanine aminotransferase increased [Recovered/Resolved]

NARRATIVE: CASE EVENT DATE: 20180121
